FAERS Safety Report 10052289 (Version 2)
Quarter: 2015Q3

REPORT INFORMATION
  Report Type: Report from Study
  Country: US (occurrence: US)
  Receive Date: 20140402
  Receipt Date: 20150717
  Transmission Date: 20151125
  Serious: Yes (Death)
  Sender: FDA-Public Use
  Company Number: US-JNJFOC-20140318829

PATIENT

DRUGS (5)
  1. MULTIVITAMINS [Concomitant]
     Active Substance: VITAMINS
     Route: 064
  2. RISPERDAL [Suspect]
     Active Substance: RISPERIDONE
     Indication: BIPOLAR DISORDER
     Route: 064
     Dates: start: 20090723, end: 20100110
  3. CALCIUM [Concomitant]
     Active Substance: CALCIUM
     Route: 064
  4. FLAXSEED [Concomitant]
     Active Substance: FLAX SEED
     Route: 064
  5. FOLIC ACID. [Concomitant]
     Active Substance: FOLIC ACID
     Route: 064

REACTIONS (3)
  - Umbilical cord abnormality [Fatal]
  - Foetal heart rate abnormal [Fatal]
  - Foetal exposure during pregnancy [Recovered/Resolved]
